FAERS Safety Report 13016319 (Version 1)
Quarter: 2016Q4

REPORT INFORMATION
  Report Type: Spontaneous
  Country: FR (occurrence: FR)
  Receive Date: 20161212
  Receipt Date: 20161212
  Transmission Date: 20170207
  Serious: Yes (Life-Threatening, Hospitalization, Other)
  Sender: FDA-Public Use
  Company Number: FR-SUN PHARMACEUTICAL INDUSTRIES LTD-2016R1-109855

PATIENT
  Age: 16 Year
  Sex: Male

DRUGS (1)
  1. ISOTRETINOIN [Suspect]
     Active Substance: ISOTRETINOIN
     Indication: ACNE
     Dosage: 20 MG, DAILY
     Route: 065

REACTIONS (7)
  - Headache [Recovered/Resolved]
  - Pyramidal tract syndrome [Recovered/Resolved]
  - Hypertonia [Recovered/Resolved]
  - Rhabdomyolysis [Recovered/Resolved]
  - Hyperthermia [Recovered/Resolved]
  - Encephalitis [Recovered/Resolved]
  - Coma [Recovered/Resolved]
